FAERS Safety Report 23606147 (Version 1)
Quarter: 2024Q1

REPORT INFORMATION
  Report Type: Spontaneous
  Country: PT (occurrence: PT)
  Receive Date: 20240307
  Receipt Date: 20240307
  Transmission Date: 20240409
  Serious: Yes (Life-Threatening, Hospitalization, Other)
  Sender: FDA-Public Use
  Company Number: None

PATIENT
  Age: 61 Year
  Sex: Male

DRUGS (5)
  1. FLUOROURACIL [Interacting]
     Active Substance: FLUOROURACIL
     Indication: Adenocarcinoma gastric
  2. OXALIPLATIN [Suspect]
     Active Substance: OXALIPLATIN
     Indication: Adenocarcinoma gastric
  3. BRIVUDINE [Suspect]
     Active Substance: BRIVUDINE
     Indication: Adenocarcinoma gastric
  4. LEUCOVORIN [Concomitant]
     Active Substance: LEUCOVORIN\LEUCOVORIN CALCIUM
     Indication: Metastases to peritoneum
  5. BRIVUDINE [Suspect]
     Active Substance: BRIVUDINE
     Indication: Herpes zoster

REACTIONS (9)
  - Odynophagia [Recovering/Resolving]
  - Alopecia [Recovering/Resolving]
  - Thrombocytopenia [Recovering/Resolving]
  - Erythema [Recovering/Resolving]
  - Food intolerance [Recovering/Resolving]
  - Neutropenia [Recovering/Resolving]
  - Labelled drug-drug interaction issue [Unknown]
  - Weight decreased [Recovering/Resolving]
  - Mucosal inflammation [Recovering/Resolving]
